FAERS Safety Report 8965845 (Version 1)
Quarter: 2012Q4

REPORT INFORMATION
  Report Type: Spontaneous
  Country: US (occurrence: None)
  Receive Date: 20121213
  Receipt Date: 20121213
  Transmission Date: 20130627
  Serious: Yes (Other)
  Sender: FDA-Public Use
  Company Number: None

PATIENT
  Age: 52 Year
  Sex: Female

DRUGS (1)
  1. ORENCIA 125MG/ML BMS [Suspect]
     Dosage: 125mg every week SQ
     Route: 058
     Dates: start: 20120801, end: 20120901

REACTIONS (3)
  - Blood pressure increased [None]
  - Headache [None]
  - Psoriasis [None]
